FAERS Safety Report 4598591-3 (Version None)
Quarter: 2005Q1

REPORT INFORMATION
  Report Type: 
  Country: None (occurrence: None)
  Receive Date: 20050304
  Receipt Date: 20050221
  Transmission Date: 20050727
  Serious: Yes (Other)
  Sender: FDA-Public Use
  Company Number: GB-ROCHE-396275

PATIENT
  Age: 97 Year
  Weight: 57.9 kg

DRUGS (4)
  1. TAMIFLU [Suspect]
     Indication: INFLUENZA
     Dosage: FORM: HARD CAPSULES.
     Route: 048
     Dates: start: 20050126, end: 20050204
  2. ASPIRIN [Concomitant]
     Route: 065
  3. TRAZODONE HCL [Concomitant]
     Indication: DRUG USE FOR UNKNOWN INDICATION
  4. CLOPIDOGREL [Concomitant]
     Indication: DRUG USE FOR UNKNOWN INDICATION

REACTIONS (7)
  - CHROMATURIA [None]
  - DECREASED APPETITE [None]
  - FEELING ABNORMAL [None]
  - HAEMATURIA [None]
  - MALAISE [None]
  - PROTEINURIA [None]
  - URINE ODOUR ABNORMAL [None]
